FAERS Safety Report 13525566 (Version 1)
Quarter: 2017Q2

REPORT INFORMATION
  Report Type: Report from Study
  Country: US (occurrence: US)
  Receive Date: 20170508
  Receipt Date: 20170508
  Transmission Date: 20170830
  Serious: Yes (Death, Life-Threatening, Hospitalization)
  Sender: FDA-Public Use
  Company Number: US-AMGEN-USACT2015105883

PATIENT
  Age: 64 Year
  Sex: Male
  Weight: 87.1 kg

DRUGS (8)
  1. SIMVASTATIN. [Concomitant]
     Active Substance: SIMVASTATIN
     Dosage: 40 MG, UNK
     Route: 048
     Dates: start: 200912, end: 20151026
  2. ASPIRIN. [Concomitant]
     Active Substance: ASPIRIN
     Dosage: 81 MG, UNK
     Route: 048
     Dates: start: 2009, end: 20151026
  3. PREDNISONE. [Concomitant]
     Active Substance: PREDNISONE
     Dosage: 80 MG,UNK
     Route: 048
     Dates: start: 20150930, end: 20151006
  4. IPILIMUMAB [Suspect]
     Active Substance: IPILIMUMAB
     Indication: MALIGNANT MELANOMA
     Dosage: 250 MG, UNK
     Route: 042
     Dates: start: 20150812, end: 20150901
  5. VITAMIN B12 [Concomitant]
     Active Substance: CYANOCOBALAMIN
     Dosage: 1 UNK, UNK
     Route: 048
     Dates: start: 2014, end: 20151026
  6. ZANTAC [Concomitant]
     Active Substance: RANITIDINE HYDROCHLORIDE
     Dosage: 600 MG, UNK
     Route: 048
     Dates: start: 2014, end: 20151026
  7. TALIMOGENE LAHERPAREPVEC [Suspect]
     Active Substance: TALIMOGENE LAHERPAREPVEC
     Indication: MALIGNANT MELANOMA
     Dosage: UNK
     Route: 065
     Dates: start: 20150707, end: 20150923
  8. FISH OIL [Concomitant]
     Active Substance: FISH OIL
     Dosage: 2400 MEQ, UNK
     Route: 048
     Dates: start: 2014, end: 20151026

REACTIONS (2)
  - Autoimmune hepatitis [Recovered/Resolved]
  - Autoimmune hepatitis [Fatal]

NARRATIVE: CASE EVENT DATE: 20151007
